FAERS Safety Report 8389825-8 (Version None)
Quarter: 2012Q2

REPORT INFORMATION
  Report Type: 
  Country: None (occurrence: None)
  Receive Date: 20120529
  Receipt Date: 20120524
  Transmission Date: 20120825
  Serious: Yes (Death, Other)
  Sender: FDA-Public Use
  Company Number: PHHY2012US045173

PATIENT
  Age: 10 Year
  Sex: Male

DRUGS (11)
  1. CYCLOSPORINE [Suspect]
     Dosage: 0.36 MG/KG/DAY
  2. NSAID'S [Concomitant]
     Dosage: UNK UKN, UNK
  3. PREDNISONE TAB [Concomitant]
     Dosage: 0.17 MG/KG/DAY
  4. CYCLOSPORINE [Suspect]
     Dosage: UNK UKN, UNK
  5. PREDNISONE TAB [Concomitant]
     Dosage: 0.33 MG/KG/DAY
  6. ANAKINRA [Suspect]
     Dosage: 1.4 MG/KG/DAY
  7. ANAKINRA [Suspect]
     Dosage: 0.7 MG/KG/DOSE
  8. DECADRON [Concomitant]
     Dosage: 60 MG/M2, UNK
     Route: 048
  9. ANAKINRA [Suspect]
     Dosage: 1.2 MG/KG/DAY
  10. CORTICOSTEROIDS [Concomitant]
     Dosage: UNK UKN, UNK
  11. METHOTREXATE [Concomitant]
     Dosage: UNK UKN, UNK

REACTIONS (24)
  - PULSE ABSENT [None]
  - FATIGUE [None]
  - VOMITING [None]
  - DIARRHOEA [None]
  - MYOCARDITIS [None]
  - TACHYPNOEA [None]
  - TACHYCARDIA [None]
  - CHEST PAIN [None]
  - HEADACHE [None]
  - WHEEZING [None]
  - NAUSEA [None]
  - PYREXIA [None]
  - HYPERTENSION [None]
  - COUGH [None]
  - APNOEA [None]
  - RESPIRATORY TRACT CONGESTION [None]
  - ARTHRITIS [None]
  - DECREASED APPETITE [None]
  - VIRAL INFECTION [None]
  - INFLAMMATION [None]
  - ARTHRALGIA [None]
  - MUSCULOSKELETAL STIFFNESS [None]
  - HAEMATURIA [None]
  - OROPHARYNGEAL PAIN [None]
